FAERS Safety Report 13598306 (Version 3)
Quarter: 2018Q1

REPORT INFORMATION
  Report Type: Report from Study
  Country: BR (occurrence: BR)
  Receive Date: 20170531
  Receipt Date: 20180116
  Transmission Date: 20180508
  Serious: Yes (Hospitalization, Other)
  Sender: FDA-Public Use
  Company Number: PHHY2017BR077181

PATIENT
  Sex: Male
  Weight: 42 kg

DRUGS (2)
  1. FOLIC ACID. [Concomitant]
     Active Substance: FOLIC ACID
     Indication: SICKLE CELL ANAEMIA
     Dosage: 1 DF, QD
     Route: 048
     Dates: start: 200211
  2. EXJADE [Suspect]
     Active Substance: DEFERASIROX
     Indication: SICKLE CELL ANAEMIA
     Dosage: 1 DF, QD
     Route: 048
     Dates: start: 201612

REACTIONS (10)
  - Pain [Recovering/Resolving]
  - Eye swelling [Recovering/Resolving]
  - Peripheral swelling [Recovering/Resolving]
  - Pneumonia [Unknown]
  - Anaemia [Unknown]
  - Underweight [Unknown]
  - Sickle cell anaemia with crisis [Unknown]
  - Pain in extremity [Recovering/Resolving]
  - Back pain [Recovering/Resolving]
  - Swelling face [Recovering/Resolving]
